FAERS Safety Report 8415377-X (Version None)
Quarter: 2012Q2

REPORT INFORMATION
  Report Type: 
  Country: None (occurrence: None)
  Receive Date: 20120606
  Receipt Date: 20120531
  Transmission Date: 20120825
  Serious: Yes (Life-Threatening, Other)
  Sender: FDA-Public Use
  Company Number: PHHY2012CA047863

PATIENT
  Sex: Male

DRUGS (4)
  1. ELLIPTIL [Concomitant]
  2. CLOZARIL [Suspect]
     Indication: SCHIZOPHRENIA
     Dosage: UNK
     Route: 048
     Dates: start: 20080428
  3. NOZINAN [Concomitant]
     Dosage: UNK
  4. SYNTHROID [Concomitant]
     Dosage: UNK
     Dates: start: 20110201

REACTIONS (4)
  - CHOKING [None]
  - FEELING ABNORMAL [None]
  - IMPATIENCE [None]
  - RESTLESSNESS [None]
